FAERS Safety Report 8600715-5 (Version None)
Quarter: 2012Q3

REPORT INFORMATION
  Report Type: 
  Country: None (occurrence: None)
  Receive Date: 20120817
  Receipt Date: 20120807
  Transmission Date: 20120928
  Serious: Yes (Other)
  Sender: FDA-Public Use
  Company Number: US-JNJFOC-20120803881

PATIENT

DRUGS (3)
  1. ACETAMINOPHEN [Suspect]
     Route: 048
  2. ACETAMINOPHEN [Suspect]
     Indication: PRODUCT USED FOR UNKNOWN INDICATION
     Dosage: 4000 MG Q.D.S.
     Route: 048
  3. ASPIRIN [Interacting]
     Indication: PRODUCT USED FOR UNKNOWN INDICATION
     Dosage: 325 MG Q.D.S
     Route: 048

REACTIONS (6)
  - NAUSEA [None]
  - GASTRITIS EROSIVE [None]
  - EROSIVE DUODENITIS [None]
  - GASTRODUODENAL ULCER [None]
  - DRUG INTERACTION [None]
  - DYSPEPSIA [None]
